FAERS Safety Report 5268701-3 (Version None)
Quarter: 2007Q1

REPORT INFORMATION
  Report Type: 
  Country: None (occurrence: None)
  Receive Date: 20070313
  Receipt Date: 20070227
  Transmission Date: 20070707
  Serious: Yes (Other)
  Sender: FDA-Public Use
  Company Number: 15829

PATIENT
  Age: 84 Year
  Sex: Male

DRUGS (1)
  1. AMIODARONE HCL [Suspect]
     Indication: ATRIAL FIBRILLATION
     Dosage: 900 MG FREQ UNK IV
     Route: 042
     Dates: start: 20070226, end: 20070227

REACTIONS (3)
  - INFUSION SITE BRUISING [None]
  - INFUSION SITE EXTRAVASATION [None]
  - INFUSION SITE PAIN [None]
